FAERS Safety Report 24465870 (Version 1)
Quarter: 2024Q4

REPORT INFORMATION
  Report Type: Spontaneous
  Country: US (occurrence: US)
  Receive Date: 20241018
  Receipt Date: 20241018
  Transmission Date: 20250115
  Serious: No
  Sender: ROCHE
  Company Number: US-ROCHE-3535564

PATIENT
  Age: 55 Year
  Sex: Male

DRUGS (1)
  1. XOLAIR [Suspect]
     Active Substance: OMALIZUMAB
     Indication: Chronic spontaneous urticaria
     Route: 058
     Dates: start: 20160301, end: 20240327

REACTIONS (3)
  - Therapeutic product effect decreased [Unknown]
  - Chronic spontaneous urticaria [Recovering/Resolving]
  - Injection site haemorrhage [Recovered/Resolved]
